FAERS Safety Report 21851601 (Version 2)
Quarter: 2023Q1

REPORT INFORMATION
  Report Type: Report from Study
  Country: US (occurrence: US)
  Receive Date: 20230112
  Receipt Date: 20230215
  Transmission Date: 20230418
  Serious: Yes (Other)
  Sender: FDA-Public Use
  Company Number: US-JNJFOC-20230111247

PATIENT
  Age: 67 Year
  Sex: Female

DRUGS (6)
  1. SPRAVATO [Suspect]
     Active Substance: ESKETAMINE
     Indication: Depression
     Dosage: 56 MG, 3 TOTAL DOSES; TWICE WEEKLY FOR APPROXIMATELY 8 WEEKS, THEN IT SWITCHED TO ONCE WEEKLY TREATM
     Dates: start: 20220612, end: 20220620
  2. SPRAVATO [Suspect]
     Active Substance: ESKETAMINE
     Dosage: ^84 MG, 22 TOTAL DOSES^?RECENT DOSE: 05-JAN-2023
     Dates: start: 20220627
  3. NITROGLYCERIN [Concomitant]
     Active Substance: NITROGLYCERIN
  4. ZOLOFT [Concomitant]
     Active Substance: SERTRALINE HYDROCHLORIDE
  5. KETAMINE [Concomitant]
     Active Substance: KETAMINE
     Route: 060
  6. TUMS [Concomitant]
     Active Substance: CALCIUM CARBONATE

REACTIONS (6)
  - Nephrolithiasis [Recovered/Resolved]
  - Chest discomfort [Unknown]
  - Product dose omission issue [Unknown]
  - Drug ineffective [Unknown]
  - Blood pressure increased [Unknown]
  - Anxiety [Unknown]

NARRATIVE: CASE EVENT DATE: 20220101
